FAERS Safety Report 4829331-8 (Version None)
Quarter: 2005Q4

REPORT INFORMATION
  Report Type: 
  Country: None (occurrence: None)
  Receive Date: 20051115
  Receipt Date: 20051115
  Transmission Date: 20060501
  Serious: No
  Sender: FDA-Public Use
  Company Number: None

PATIENT
  Sex: Male
  Weight: 108.2736 kg

DRUGS (6)
  1. LISINOPRIL [Suspect]
     Indication: HYPERTENSION
     Dosage: 40MG  ONCE DAILY  PO
     Route: 048
     Dates: start: 20050322, end: 20050822
  2. HYDROCHLOROTHIAZIDE [Concomitant]
  3. LOVASTATIN [Concomitant]
  4. OMEPRAZOLE [Concomitant]
  5. GLYBURIDE [Concomitant]
  6. ASPIRIN [Concomitant]

REACTIONS (1)
  - NECK PAIN [None]
